FAERS Safety Report 14317329 (Version 1)
Quarter: 2017Q4

REPORT INFORMATION
  Report Type: Spontaneous
  Country: PT (occurrence: PT)
  Receive Date: 20171222
  Receipt Date: 20171222
  Transmission Date: 20180321
  Serious: Yes (Other)
  Sender: FDA-Public Use
  Company Number: PT-ABBVIE-17K-130-2201975-00

PATIENT
  Age: 37 Year
  Sex: Male

DRUGS (2)
  1. HUMIRA [Suspect]
     Active Substance: ADALIMUMAB
     Route: 058
     Dates: start: 20141010
  2. HUMIRA [Suspect]
     Active Substance: ADALIMUMAB
     Indication: SPONDYLITIS
     Route: 058
     Dates: start: 20140401, end: 2014

REACTIONS (2)
  - Retinal detachment [Recovered/Resolved with Sequelae]
  - Adenoviral upper respiratory infection [Unknown]

NARRATIVE: CASE EVENT DATE: 2014
